FAERS Safety Report 12775251 (Version 4)
Quarter: 2016Q4

REPORT INFORMATION
  Report Type: Spontaneous
  Country: US (occurrence: US)
  Receive Date: 20160923
  Receipt Date: 20161215
  Transmission Date: 20170207
  Serious: Yes (Other)
  Sender: FDA-Public Use
  Company Number: US-ALEXION PHARMACEUTICALS INC.-A201607005

PATIENT
  Sex: Male

DRUGS (1)
  1. STRENSIQ [Suspect]
     Active Substance: ASFOTASE ALFA
     Indication: HYPOPHOSPHATASIA
     Route: 058

REACTIONS (19)
  - Hyponatraemia [Unknown]
  - Urine sodium abnormal [Unknown]
  - Procedural pain [None]
  - Neuralgia [Unknown]
  - Dizziness [Unknown]
  - Hyperhidrosis [Unknown]
  - Pain in extremity [Unknown]
  - Decreased appetite [Recovering/Resolving]
  - Aspartate aminotransferase decreased [Unknown]
  - Weight increased [Unknown]
  - Alanine aminotransferase decreased [Unknown]
  - Headache [Unknown]
  - Disorientation [Unknown]
  - Vision blurred [Unknown]
  - Weight decreased [Unknown]
  - Blood urea increased [Unknown]
  - Nausea [Unknown]
  - Addison^s disease [Unknown]
  - Blood cortisol decreased [Unknown]
